FAERS Safety Report 5534778-0 (Version None)
Quarter: 2007Q4

REPORT INFORMATION
  Report Type: 
  Country: None (occurrence: None)
  Receive Date: 20071205
  Receipt Date: 20071121
  Transmission Date: 20080405
  Serious: Yes (Other)
  Sender: FDA-Public Use
  Company Number: JP-GENENTECH-252021

PATIENT
  Age: 48 Year
  Sex: Female

DRUGS (1)
  1. AVASTIN [Suspect]
     Indication: GLAUCOMA
     Dosage: 1.25 MG, UNK
     Route: 031

REACTIONS (2)
  - RETINAL DETACHMENT [None]
  - VITREOUS DISORDER [None]
